FAERS Safety Report 23781751 (Version 1)
Quarter: 2024Q2

REPORT INFORMATION
  Report Type: Spontaneous
  Country: US (occurrence: US)
  Receive Date: 20240425
  Receipt Date: 20240425
  Transmission Date: 20240716
  Serious: No
  Sender: FDA-Public Use
  Company Number: US-TEVA-VS-3181439

PATIENT
  Age: 29 Year
  Sex: Female

DRUGS (6)
  1. NORTRIPTYLINE [Suspect]
     Active Substance: NORTRIPTYLINE
     Indication: Pain
     Route: 065
  2. GAMMAGARD [Suspect]
     Active Substance: HUMAN IMMUNOGLOBULIN G
     Indication: Dermatomyositis
     Dosage: GAMMAGARD 20G VIAL?FOR 2 DAYS, EVERY 2 WEEKS
     Route: 042
  3. GAMMAGARD [Suspect]
     Active Substance: HUMAN IMMUNOGLOBULIN G
     Indication: Dermatomyositis
     Dosage: GAMMAGARD 10G VIAL?FOR 2 DAYS, EVERY 2 WEEKS
     Route: 042
  4. DIPHENHYDRAMINE [Concomitant]
     Active Substance: DIPHENHYDRAMINE
     Dosage: 30 MINUTES PRIOR TO IVIG INFUSION
     Route: 048
  5. ACETAMINOPHEN [Concomitant]
     Active Substance: ACETAMINOPHEN
     Dosage: 30 MINUTES PRIOR TO IVIG INFUSION
     Route: 048
  6. Solu-Medrol 15mg [Concomitant]
     Dosage: ADMINISTER OVER 1-2 MINUTES,30 MINUTES PRIOR TO EACH IVIG INFUSION
     Route: 065

REACTIONS (2)
  - Drug ineffective [Unknown]
  - Self-medication [Unknown]

NARRATIVE: CASE EVENT DATE: 20230301
